FAERS Safety Report 16367528 (Version 1)
Quarter: 2019Q2

REPORT INFORMATION
  Report Type: Spontaneous
  Country: US (occurrence: US)
  Receive Date: 20190423
  Receipt Date: 20190423
  Transmission Date: 20190711
  Serious: No
  Sender: FDA-Public Use
  Company Number: None

PATIENT
  Age: 59 Year
  Sex: Female

DRUGS (3)
  1. IBRANCE [Suspect]
     Active Substance: PALBOCICLIB
     Dates: start: 20181229
  2. AMLODIPINE [Concomitant]
     Active Substance: AMLODIPINE BESYLATE
  3. LETROZOLE. [Concomitant]
     Active Substance: LETROZOLE

REACTIONS (5)
  - Dry skin [None]
  - Decreased appetite [None]
  - Taste disorder [None]
  - Pruritus [None]
  - Vomiting [None]

NARRATIVE: CASE EVENT DATE: 20190412
